FAERS Safety Report 8583871-7 (Version None)
Quarter: 2012Q3

REPORT INFORMATION
  Report Type: 
  Country: None (occurrence: None)
  Receive Date: 20120810
  Receipt Date: 20120731
  Transmission Date: 20120928
  Serious: Yes (Hospitalization, Disabling, Other)
  Sender: FDA-Public Use
  Company Number: US-009507513-1206USA00880

PATIENT

DRUGS (4)
  1. PREMPRO [Concomitant]
     Indication: MENOPAUSE
     Dosage: 0.3/1.5 MG TWICE WEEKLY M/F
     Dates: start: 20000101
  2. FOSAMAX [Suspect]
     Indication: OSTEOPENIA
     Dosage: 70 MG, QW
     Route: 048
     Dates: start: 20040201, end: 20100101
  3. FOSAMAX [Suspect]
     Indication: OSTEOPOROSIS
  4. FOSAMAX [Suspect]
     Dosage: 70 MG, QW
     Route: 048
     Dates: end: 20100715

REACTIONS (16)
  - HYPERCHOLESTEROLAEMIA [None]
  - PERIPROSTHETIC FRACTURE [None]
  - VERTIGO POSITIONAL [None]
  - TENDONITIS [None]
  - HIP DEFORMITY [None]
  - ELECTROCARDIOGRAM ABNORMAL [None]
  - WEIGHT DECREASED [None]
  - FEMORAL NECK FRACTURE [None]
  - HORMONE THERAPY [None]
  - SKELETAL INJURY [None]
  - OSTEITIS CONDENSANS [None]
  - ALLERGIC RESPIRATORY SYMPTOM [None]
  - UPPER RESPIRATORY TRACT INFECTION [None]
  - BLOOD HOMOCYSTEINE INCREASED [None]
  - OSTEOARTHRITIS [None]
  - BURSITIS [None]
